FAERS Safety Report 11619980 (Version 1)
Quarter: 2015Q4

REPORT INFORMATION
  Report Type: Spontaneous
  Country: GB (occurrence: GB)
  Receive Date: 20151012
  Receipt Date: 20151012
  Transmission Date: 20160304
  Serious: Yes (Other)
  Sender: FDA-Public Use
  Company Number: GB-GLAXOSMITHKLINE-GB2015142322

PATIENT
  Age: 22 Year
  Sex: Female
  Weight: 63.5 kg

DRUGS (2)
  1. IMIGRAN [Suspect]
     Active Substance: SUMATRIPTAN SUCCINATE
     Indication: MIGRAINE
     Route: 048
     Dates: start: 20150922, end: 20150922
  2. MIGRALEVE (BUCLIZINE HYDROCHLORIDE/CODEINE PHOSPHATE/PARACETAMOL) [Concomitant]

REACTIONS (6)
  - Hypertension [Not Recovered/Not Resolved]
  - Nasal discomfort [Unknown]
  - Dizziness [Not Recovered/Not Resolved]
  - Chest discomfort [Recovering/Resolving]
  - Throat tightness [Unknown]
  - Visual impairment [Unknown]

NARRATIVE: CASE EVENT DATE: 20150922
